FAERS Safety Report 14473495 (Version 2)
Quarter: 2019Q1

REPORT INFORMATION
  Report Type: Spontaneous
  Country: US (occurrence: US)
  Receive Date: 20180201
  Receipt Date: 20190129
  Transmission Date: 20190417
  Serious: No
  Sender: FDA-Public Use
  Company Number: US-AUROBINDO-AUR-APL-2017-44362

PATIENT
  Sex: Female

DRUGS (1)
  1. DULOXETINE DELAYED RELEASE CAPSULES [Suspect]
     Active Substance: DULOXETINE
     Indication: DEPRESSION
     Dosage: 60 MG AND 30 MG, ONCE A DAY

REACTIONS (3)
  - Feeling abnormal [Unknown]
  - Product colour issue [Unknown]
  - Emotional disorder [Unknown]
